FAERS Safety Report 24344033 (Version 2)
Quarter: 2024Q4

REPORT INFORMATION
  Report Type: Spontaneous
  Country: FR (occurrence: FR)
  Receive Date: 20240920
  Receipt Date: 20241011
  Transmission Date: 20250114
  Serious: Yes (Hospitalization)
  Sender: AMGEN
  Company Number: FR-AMGEN-FRASP2024185392

PATIENT
  Age: 76 Year
  Sex: Female
  Weight: 45 kg

DRUGS (3)
  1. REPATHA [Suspect]
     Active Substance: EVOLOCUMAB
     Indication: Type IIa hyperlipidaemia
     Dosage: 1 DOSAGE FORM (140 MG), Q2WK
     Route: 058
     Dates: start: 2017, end: 20240803
  2. VALSARTAN [Suspect]
     Active Substance: VALSARTAN
     Indication: Hypertension
     Dosage: 40 MILLIGRAM, QD
     Route: 048
     Dates: end: 20240821
  3. KARDEGIC [Suspect]
     Active Substance: ASPIRIN DL-LYSINE
     Indication: Disease risk factor
     Dosage: 75 MILLIGRAM, QD
     Route: 048
     Dates: end: 20240808

REACTIONS (2)
  - Haemorrhagic diathesis [Not Recovered/Not Resolved]
  - Platelet aggregation abnormal [Recovering/Resolving]

NARRATIVE: CASE EVENT DATE: 20240822
